FAERS Safety Report 13462777 (Version 1)
Quarter: 2017Q2

REPORT INFORMATION
  Report Type: Spontaneous
  Country: US (occurrence: US)
  Receive Date: 20170420
  Receipt Date: 20170420
  Transmission Date: 20170830
  Serious: No
  Sender: FDA-Public Use
  Company Number: US-PFIZER INC-2017170287

PATIENT
  Age: 74 Year
  Sex: Male
  Weight: 80 kg

DRUGS (3)
  1. VITAMIN C [Concomitant]
     Active Substance: ASCORBIC ACID
     Indication: VITAMIN SUPPLEMENTATION
     Dosage: 1 DF, UNK
     Dates: start: 20170215
  2. SUTENT [Suspect]
     Active Substance: SUNITINIB MALATE
     Indication: RENAL CANCER
     Dosage: 50 MG, CYCLIC (1X/DAY FOR 28 DAYS AND THEN HAD 2 WEEKS OFF)
     Route: 048
     Dates: start: 20170215
  3. VITAMIN B12 [Concomitant]
     Active Substance: CYANOCOBALAMIN
     Indication: VITAMIN SUPPLEMENTATION
     Dosage: 1 DF, UNK
     Dates: start: 20170215

REACTIONS (7)
  - Hair colour changes [Unknown]
  - Feeding disorder [Not Recovered/Not Resolved]
  - Feeling abnormal [Unknown]
  - Oral pain [Not Recovered/Not Resolved]
  - Dry mouth [Not Recovered/Not Resolved]
  - Weight decreased [Unknown]
  - Lip dry [Not Recovered/Not Resolved]

NARRATIVE: CASE EVENT DATE: 201702
